FAERS Safety Report 5692148-9 (Version None)
Quarter: 2008Q2

REPORT INFORMATION
  Report Type: 
  Country: None (occurrence: None)
  Receive Date: 20080402
  Receipt Date: 20080327
  Transmission Date: 20081010
  Serious: Yes (Other)
  Sender: FDA-Public Use
  Company Number: A0717858A

PATIENT
  Age: 10 Year
  Sex: Male

DRUGS (2)
  1. BUPROPION HYDROCHLORIDE [Suspect]
     Indication: DEPRESSION
     Dosage: 150MG PER DAY
     Route: 048
     Dates: start: 20080228
  2. ZOLOFT [Concomitant]

REACTIONS (3)
  - ABDOMINAL PAIN UPPER [None]
  - GASTRITIS [None]
  - IRRITABLE BOWEL SYNDROME [None]
